FAERS Safety Report 4371183-7 (Version None)
Quarter: 2004Q2

REPORT INFORMATION
  Report Type: 
  Country: None (occurrence: None)
  Receive Date: 20040604
  Receipt Date: 20040525
  Transmission Date: 20050107
  Serious: Yes (Hospitalization)
  Sender: FDA-Public Use
  Company Number: US-ROCHE-369074

PATIENT
  Age: 50 Year
  Sex: Female
  Weight: 101.2 kg

DRUGS (9)
  1. CAPECITABINE [Suspect]
     Dosage: MONDAY TO FRIDAY EVERY WEEK OF THE TWO WEEK CYCLE. THE PATIENT ALREADY RECEIVED TWO CYCLES.
     Route: 048
     Dates: end: 20040520
  2. BEVACIZUMAB [Suspect]
     Dosage: THE PATIENT ALREADY RECEIVED 2 CYCLES.
     Route: 042
  3. OXALIPLATIN (AS COMPARATOR) [Suspect]
     Route: 042
     Dates: start: 20040517
  4. COMBIVENT [Concomitant]
  5. XANAX [Concomitant]
  6. NEXIUM [Concomitant]
  7. AMBIEN [Concomitant]
  8. PROZAC [Concomitant]
  9. DESYREL [Concomitant]

REACTIONS (2)
  - DEHYDRATION [None]
  - INTESTINAL OBSTRUCTION [None]
